FAERS Safety Report 12999644 (Version 1)
Quarter: 2016Q4

REPORT INFORMATION
  Report Type: Spontaneous
  Country: US (occurrence: US)
  Receive Date: 20161205
  Receipt Date: 20161205
  Transmission Date: 20170207
  Serious: No
  Sender: FDA-Public Use
  Company Number: US-ELI_LILLY_AND_COMPANY-US201608000992

PATIENT
  Sex: Female

DRUGS (3)
  1. CYMBALTA [Suspect]
     Active Substance: DULOXETINE HYDROCHLORIDE
     Dosage: 120 MG, QD
     Route: 048
     Dates: start: 200808, end: 2011
  2. CYMBALTA [Suspect]
     Active Substance: DULOXETINE HYDROCHLORIDE
     Indication: PRODUCT USED FOR UNKNOWN INDICATION
     Dosage: 120 MG, QD
     Route: 048
     Dates: start: 200703
  3. CYMBALTA [Suspect]
     Active Substance: DULOXETINE HYDROCHLORIDE
     Dosage: 30 MG, QD
     Route: 065
     Dates: end: 20080304

REACTIONS (15)
  - Dizziness [Unknown]
  - Anxiety [Unknown]
  - Affect lability [Unknown]
  - Insomnia [Unknown]
  - Irritability [Unknown]
  - Agitation [Unknown]
  - Paraesthesia [Unknown]
  - Night sweats [Unknown]
  - Lethargy [Unknown]
  - Fatigue [Unknown]
  - Dysphoria [Unknown]
  - Tremor [Unknown]
  - Confusional state [Unknown]
  - Headache [Unknown]
  - Drug withdrawal syndrome [Unknown]
